FAERS Safety Report 24797882 (Version 2)
Quarter: 2025Q1

REPORT INFORMATION
  Report Type: Spontaneous
  Country: US (occurrence: US)
  Receive Date: 20250102
  Receipt Date: 20250102
  Transmission Date: 20250408
  Serious: No
  Sender: ELI LILLY AND COMPANY
  Company Number: US-ELI_LILLY_AND_COMPANY-US202412019341

PATIENT
  Age: 74 Year
  Sex: Female

DRUGS (8)
  1. ZEPBOUND [Suspect]
     Active Substance: TIRZEPATIDE
     Indication: Hypertension
     Route: 058
  2. ZEPBOUND [Suspect]
     Active Substance: TIRZEPATIDE
     Indication: Hypertension
     Route: 058
  3. ZEPBOUND [Suspect]
     Active Substance: TIRZEPATIDE
     Indication: Hypertension
     Route: 058
  4. ZEPBOUND [Suspect]
     Active Substance: TIRZEPATIDE
     Indication: Hypertension
     Route: 058
  5. ZEPBOUND [Suspect]
     Active Substance: TIRZEPATIDE
     Indication: Blood cholesterol increased
  6. ZEPBOUND [Suspect]
     Active Substance: TIRZEPATIDE
     Indication: Blood cholesterol increased
  7. ZEPBOUND [Suspect]
     Active Substance: TIRZEPATIDE
     Indication: Blood cholesterol increased
  8. ZEPBOUND [Suspect]
     Active Substance: TIRZEPATIDE
     Indication: Blood cholesterol increased

REACTIONS (2)
  - Off label use [Unknown]
  - Accidental underdose [Unknown]
